FAERS Safety Report 9721893 (Version 2)
Quarter: 2014Q2

REPORT INFORMATION
  Report Type: Report from Study
  Country: DE (occurrence: DE)
  Receive Date: 20131201
  Receipt Date: 20140609
  Transmission Date: 20141212
  Serious: Yes (Hospitalization)
  Sender: FDA-Public Use
  Company Number: DE-ROCHE-1310478

PATIENT
  Age: 66 Year
  Sex: Female
  Weight: 66.9 kg

DRUGS (3)
  1. BEVACIZUMAB [Suspect]
     Indication: OVARIAN CANCER
     Dosage: LAST DOSE PRIOR TO SAE ON 31/OCT/2013
     Route: 042
     Dates: start: 20130301
  2. CARBOPLATIN [Suspect]
     Indication: OVARIAN CANCER
     Dosage: LAST DOSE PRIOR TO SAE ON 17/MAY/2013
     Route: 042
     Dates: start: 20130117
  3. PACLITAXEL [Suspect]
     Indication: OVARIAN CANCER
     Dosage: LAST DOSE PRIOR TO SAE ON 17/MAY/2013
     Route: 042
     Dates: start: 20130117

REACTIONS (1)
  - Hydronephrosis [Recovered/Resolved]
